FAERS Safety Report 4480242-X (Version None)
Quarter: 2004Q4

REPORT INFORMATION
  Report Type: 
  Country: None (occurrence: None)
  Receive Date: 20041020
  Receipt Date: 20041012
  Transmission Date: 20050328
  Serious: Yes (Life-Threatening, Hospitalization, Disabling)
  Sender: FDA-Public Use
  Company Number: US-MERCK-0410USA01780

PATIENT
  Age: 57 Year
  Sex: Female

DRUGS (22)
  1. VIOXX [Suspect]
     Indication: RHEUMATOID ARTHRITIS
     Route: 048
     Dates: start: 19990101
  2. VIOXX [Suspect]
     Indication: OSTEOARTHRITIS
     Route: 048
     Dates: start: 19990101
  3. COUMADIN [Concomitant]
     Route: 065
  4. SULFASALAZINE [Concomitant]
     Route: 065
  5. NIFEDIPINE [Concomitant]
     Route: 065
  6. METHOTREXATE [Concomitant]
     Route: 065
  7. FOLIC ACID [Concomitant]
     Route: 065
  8. TRAMADOL HYDROCHLORIDE [Concomitant]
     Route: 065
  9. EXELON [Concomitant]
     Route: 065
  10. ATENOLOL [Concomitant]
     Route: 065
  11. PROZAC [Concomitant]
     Route: 065
  12. DITROPAN XL [Concomitant]
     Route: 065
  13. ALLEGRA [Concomitant]
     Route: 065
  14. OMEPRAZOLE [Concomitant]
     Route: 065
  15. PRAVACHOL [Concomitant]
     Route: 065
  16. GASTROINTESTINAL PREPARATIONS (UNSPECIFIED) [Concomitant]
     Route: 065
  17. CALCIUM (UNSPECIFIED) [Concomitant]
     Route: 065
  18. ALEVE [Concomitant]
     Route: 065
  19. [THERAPY UNSPECIFIED] [Concomitant]
     Route: 065
  20. HUMIRA [Concomitant]
     Route: 065
  21. ENULOSE [Concomitant]
     Route: 065
  22. MONOPRIL [Concomitant]
     Route: 065

REACTIONS (1)
  - CEREBROVASCULAR ACCIDENT [None]
